FAERS Safety Report 18605746 (Version 3)
Quarter: 2021Q3

REPORT INFORMATION
  Report Type: Report from Study
  Country: US (occurrence: US)
  Receive Date: 20201211
  Receipt Date: 20210907
  Transmission Date: 20211014
  Serious: No
  Sender: FDA-Public Use
  Company Number: NVSC2020US330417

PATIENT
  Sex: Male

DRUGS (2)
  1. CARVEDILOL. [Suspect]
     Active Substance: CARVEDILOL
     Indication: PRODUCT USED FOR UNKNOWN INDICATION
     Dosage: UNK UNK, UNKNOWN (6.25)
     Route: 065
  2. ENTRESTO [Suspect]
     Active Substance: SACUBITRIL\VALSARTAN
     Indication: CARDIAC FAILURE CHRONIC
     Dosage: UNK
     Route: 065

REACTIONS (9)
  - Agitation [Unknown]
  - Adverse drug reaction [Unknown]
  - Headache [Unknown]
  - Malaise [Unknown]
  - Psychomotor hyperactivity [Unknown]
  - Aggression [Unknown]
  - Pruritus [Unknown]
  - Rash [Unknown]
  - Product label issue [Unknown]
